FAERS Safety Report 7127826-8 (Version None)
Quarter: 2010Q4

REPORT INFORMATION
  Report Type: 
  Country: None (occurrence: None)
  Receive Date: 20101029
  Receipt Date: 20100701
  Transmission Date: 20110411
  Serious: Yes (Other)
  Sender: FDA-Public Use
  Company Number: SPV1-2010-01201

PATIENT
  Age: 11 Year
  Sex: Female
  Weight: 23.6 kg

DRUGS (5)
  1. INTUNIV [Suspect]
     Indication: AFFECTIVE DISORDER
     Dosage: 2 MG, 1X/DAY:QD, ORAL; 1 MG, 1X/DAY:QD, ORAL
     Route: 048
     Dates: start: 20100605, end: 20100601
  2. INTUNIV [Suspect]
     Indication: ATTENTION DEFICIT/HYPERACTIVITY DISORDER
     Dosage: 2 MG, 1X/DAY:QD, ORAL; 1 MG, 1X/DAY:QD, ORAL
     Route: 048
     Dates: start: 20100605, end: 20100601
  3. INTUNIV [Suspect]
     Indication: AFFECTIVE DISORDER
     Dosage: 2 MG, 1X/DAY:QD, ORAL; 1 MG, 1X/DAY:QD, ORAL
     Route: 048
     Dates: start: 20100601
  4. INTUNIV [Suspect]
     Indication: ATTENTION DEFICIT/HYPERACTIVITY DISORDER
     Dosage: 2 MG, 1X/DAY:QD, ORAL; 1 MG, 1X/DAY:QD, ORAL
     Route: 048
     Dates: start: 20100601
  5. CLONIDINE [Concomitant]

REACTIONS (2)
  - BLOOD PRESSURE DECREASED [None]
  - SYNCOPE [None]
